FAERS Safety Report 7273426-9 (Version None)
Quarter: 2011Q1

REPORT INFORMATION
  Report Type: 
  Country: None (occurrence: None)
  Receive Date: 20110203
  Receipt Date: 20100810
  Transmission Date: 20110831
  Serious: No
  Sender: FDA-Public Use
  Company Number: US-ABBOTT-10P-163-0663997-00

PATIENT
  Sex: Female
  Weight: 53.572 kg

DRUGS (5)
  1. SYNTHROID [Suspect]
     Indication: HYPOTHYROIDISM
     Dates: start: 20070501, end: 20080101
  2. SYNTHROID [Suspect]
  3. SYNTHROID [Suspect]
     Dates: start: 20080101
  4. SYNTHROID [Suspect]
  5. SYNTHROID [Suspect]

REACTIONS (8)
  - RED BLOOD CELL COUNT DECREASED [None]
  - ALOPECIA [None]
  - WEIGHT INCREASED [None]
  - OVERDOSE [None]
  - HYPERTHYROIDISM [None]
  - TRI-IODOTHYRONINE DECREASED [None]
  - HERPES ZOSTER [None]
  - FATIGUE [None]
